FAERS Safety Report 4705444-6 (Version None)
Quarter: 2005Q3

REPORT INFORMATION
  Report Type: 
  Country: None (occurrence: None)
  Receive Date: 20050701
  Receipt Date: 20050624
  Transmission Date: 20060218
  Serious: Yes (Other)
  Sender: FDA-Public Use
  Company Number: NL-GLAXOSMITHKLINE-B0386466A

PATIENT
  Sex: Male

DRUGS (1)
  1. FLIXONASE [Suspect]
     Indication: NASAL DISCOMFORT
     Route: 045

REACTIONS (2)
  - CONDITION AGGRAVATED [None]
  - HYPOACUSIS [None]
